FAERS Safety Report 24296889 (Version 1)
Quarter: 2024Q3

REPORT INFORMATION
  Report Type: Spontaneous
  Country: CN (occurrence: CN)
  Receive Date: 20240909
  Receipt Date: 20240909
  Transmission Date: 20241017
  Serious: Yes (Hospitalization)
  Sender: TAKEDA
  Company Number: CN-TAKEDA-2024TUS088497

PATIENT
  Age: 73 Year
  Sex: Male

DRUGS (2)
  1. ALBUMIN HUMAN [Suspect]
     Active Substance: ALBUMIN HUMAN
     Indication: Hypoproteinaemia
     Dosage: 10 GRAM, QD
     Route: 041
     Dates: start: 20240825, end: 20240828
  2. SODIUM CHLORIDE [Concomitant]
     Active Substance: SODIUM CHLORIDE
     Indication: Hypoproteinaemia
     Dosage: 100 MILLILITER, QD
     Route: 041
     Dates: start: 20240825, end: 20240828

REACTIONS (1)
  - Hypersensitivity [Recovering/Resolving]

NARRATIVE: CASE EVENT DATE: 20240828
